FAERS Safety Report 10029316 (Version 2)
Quarter: 2014Q1

REPORT INFORMATION
  Report Type: Spontaneous
  Country: US (occurrence: US)
  Receive Date: 20140321
  Receipt Date: 20140321
  Transmission Date: 20141002
  Serious: Yes (Disabling)
  Sender: FDA-Public Use
  Company Number: US-GE HEALTHCARE MEDICAL DIAGNOSTICS-OSCN-PR-0808S-0508

PATIENT
  Age: 60 Year
  Sex: Male

DRUGS (17)
  1. OMNISCAN [Suspect]
     Indication: INTERMITTENT CLAUDICATION
     Route: 042
     Dates: start: 20051004, end: 20051004
  2. OMNISCAN [Suspect]
     Indication: PERIPHERAL VASCULAR DISORDER
     Route: 042
     Dates: start: 20051102, end: 20051102
  3. OMNISCAN [Suspect]
     Indication: PERIPHERAL VASCULAR DISORDER
     Route: 042
     Dates: start: 20060217, end: 20060217
  4. OMNISCAN [Suspect]
     Indication: PERIPHERAL VASCULAR DISORDER
     Route: 042
     Dates: start: 20060720, end: 20060720
  5. OMNISCAN [Suspect]
     Indication: PAIN
     Route: 042
     Dates: start: 20070306, end: 20070306
  6. OMNISCAN [Suspect]
     Indication: INTERMITTENT CLAUDICATION
     Route: 042
     Dates: start: 20070511, end: 20070511
  7. GADOLINIUM (UNSPECIFIED) [Suspect]
     Indication: PERIPHERAL VASCULAR DISORDER
     Route: 042
     Dates: start: 20061222, end: 20061222
  8. GADOLINIUM (UNSPECIFIED) [Suspect]
     Indication: ISCHAEMIA
     Route: 042
     Dates: start: 20070102, end: 20070102
  9. MAGNEVIST [Suspect]
     Indication: PERIPHERAL VASCULAR DISORDER
     Route: 042
     Dates: start: 20050907, end: 20050907
  10. MAGNEVIST [Suspect]
     Indication: PERIPHERAL VASCULAR DISORDER
     Route: 042
     Dates: start: 20050907, end: 20050907
  11. MAGNEVIST [Suspect]
     Indication: PERIPHERAL VASCULAR DISORDER
     Route: 042
     Dates: start: 20050907, end: 20050907
  12. MAGNEVIST [Suspect]
     Indication: PERIPHERAL VASCULAR DISORDER
     Route: 042
     Dates: start: 20051209, end: 20051209
  13. MAGNEVIST [Suspect]
     Indication: PERIPHERAL VASCULAR DISORDER
     Route: 042
     Dates: start: 20051209, end: 20051209
  14. MAGNEVIST [Suspect]
     Indication: PERIPHERAL VASCULAR DISORDER
     Route: 042
     Dates: start: 20051209, end: 20051209
  15. MAGNEVIST [Suspect]
     Indication: PRODUCT USED FOR UNKNOWN INDICATION
     Route: 042
     Dates: start: 20060712, end: 20060712
  16. MAGNEVIST [Suspect]
     Indication: PRODUCT USED FOR UNKNOWN INDICATION
     Route: 042
     Dates: start: 20060712, end: 20060712
  17. MAGNEVIST [Suspect]
     Indication: PRODUCT USED FOR UNKNOWN INDICATION
     Route: 042
     Dates: start: 20060712, end: 20060712

REACTIONS (1)
  - Nephrogenic systemic fibrosis [Not Recovered/Not Resolved]
